FAERS Safety Report 18771492 (Version 1)
Quarter: 2021Q1

REPORT INFORMATION
  Report Type: Spontaneous
  Country: US (occurrence: US)
  Receive Date: 20210121
  Receipt Date: 20210121
  Transmission Date: 20210419
  Serious: No
  Sender: FDA-Public Use
  Company Number: US-PERRIGO-20US006119

PATIENT
  Age: 52 Year
  Sex: Female
  Weight: 65.76 kg

DRUGS (2)
  1. IBUPROFEN. [Suspect]
     Active Substance: IBUPROFEN
     Dosage: 600 MG, SINGLE
     Route: 048
     Dates: start: 20200424, end: 20200424
  2. IBUPROFEN. [Suspect]
     Active Substance: IBUPROFEN
     Indication: HEADACHE
     Dosage: 400 TO 600 MG, SINGLE
     Route: 048
     Dates: start: 202001, end: 202001

REACTIONS (2)
  - Incorrect dose administered [Recovered/Resolved]
  - Pruritus [Not Recovered/Not Resolved]

NARRATIVE: CASE EVENT DATE: 202001
